FAERS Safety Report 8007979-X (Version None)
Quarter: 2011Q4

REPORT INFORMATION
  Report Type: 
  Country: None (occurrence: None)
  Receive Date: 20111222
  Receipt Date: 20111222
  Transmission Date: 20120403
  Serious: Yes (Hospitalization)
  Sender: FDA-Public Use
  Company Number: None

PATIENT
  Age: 70 Year
  Sex: Female
  Weight: 52.1637 kg

DRUGS (1)
  1. CLINDAMYCIN [Suspect]
     Indication: TOOTH EXTRACTION
     Dosage: 300 MG EVERY 6 HOURS 40 PILLS
     Dates: start: 20111020

REACTIONS (3)
  - CLOSTRIDIAL INFECTION [None]
  - ASTHENIA [None]
  - MALAISE [None]
